FAERS Safety Report 5858619-7 (Version None)
Quarter: 2008Q3

REPORT INFORMATION
  Report Type: 
  Country: None (occurrence: None)
  Receive Date: 20080826
  Receipt Date: 20080814
  Transmission Date: 20090109
  Serious: Yes (Hospitalization, Other)
  Sender: FDA-Public Use
  Company Number: US-PFIZER INC-2008069286

PATIENT
  Sex: Male
  Weight: 95.3 kg

DRUGS (3)
  1. DILANTIN [Suspect]
     Indication: CONVULSION PROPHYLAXIS
     Dates: start: 20080101, end: 20080801
  2. ANALGESICS [Suspect]
     Indication: PAIN
  3. ATACAND [Concomitant]

REACTIONS (2)
  - ANTICONVULSANT DRUG LEVEL DECREASED [None]
  - CONVULSION [None]
